FAERS Safety Report 16909589 (Version 1)
Quarter: 2019Q4

REPORT INFORMATION
  Report Type: Spontaneous
  Country: FR (occurrence: FR)
  Receive Date: 20191011
  Receipt Date: 20191011
  Transmission Date: 20200122
  Serious: Yes (Life-Threatening)
  Sender: FDA-Public Use
  Company Number: FR-AMGEN-FRASP2019164873

PATIENT
  Age: 51 Year
  Sex: Male
  Weight: 75 kg

DRUGS (3)
  1. BILASKA [Concomitant]
     Active Substance: BILASTINE
     Dosage: 20 MILLIGRAM
  2. ADALIMUMAB [Suspect]
     Active Substance: ADALIMUMAB
     Indication: PSORIASIS
     Dosage: 40 MILLIGRAM, Q2WK
     Route: 058
     Dates: start: 201902, end: 201907
  3. ADALIMUMAB [Suspect]
     Active Substance: ADALIMUMAB
     Dosage: 80 MILLIGRAM, Q2WK
     Route: 058
     Dates: start: 201907, end: 201909

REACTIONS (1)
  - Acute myocardial infarction [Recovered/Resolved]

NARRATIVE: CASE EVENT DATE: 20190905
